FAERS Safety Report 8568772 (Version 2)
Quarter: 2014Q1

REPORT INFORMATION
  Report Type: Spontaneous
  Country: US (occurrence: None)
  Receive Date: 20120323
  Receipt Date: 20130305
  Transmission Date: 20141002
  Serious: Yes (Hospitalization)
  Sender: FDA-Public Use
  Company Number: 163-21880-11113224

PATIENT
  Age: 67 Year
  Sex: Male

DRUGS (11)
  1. REVLIMID(LENALIDOMIDE) (CAPSULES) [Suspect]
     Indication: CHRONIC LYMPHOCYTIC LEUKAEMIA
     Dosage: 10 MG, PO , 10 MG, PO
     Route: 048
     Dates: start: 20111028
  2. NOVOLOG [Concomitant]
  3. COUMADIN [Concomitant]
  4. ZOCOR [Concomitant]
  5. TOPROL XL [Concomitant]
  6. KEPPRA [Concomitant]
  7. NEURONTIN [Concomitant]
  8. ZOVIRAX [Concomitant]
  9. POTASSIUM CHLORIDE [Concomitant]
  10. DIFLUCAN (FLUCONAZOLE) [Concomitant]
  11. CIPRO (CIPROFLOXACIN) [Concomitant]

REACTIONS (1)
  - Anaemia [None]
